FAERS Safety Report 8170023-8 (Version None)
Quarter: 2012Q1

REPORT INFORMATION
  Report Type: 
  Country: None (occurrence: None)
  Receive Date: 20120228
  Receipt Date: 20120215
  Transmission Date: 20120608
  Serious: Yes (Other)
  Sender: FDA-Public Use
  Company Number: BR-AMGEN-BRASP2012011597

PATIENT
  Age: 53 Year
  Sex: Female
  Weight: 63 kg

DRUGS (4)
  1. ENBREL [Suspect]
     Indication: RHEUMATOID ARTHRITIS
     Dosage: 50 MG, ONCE WEEKLY
     Route: 058
     Dates: start: 20110901
  2. PREDNISOLONE [Concomitant]
     Dosage: UNK
  3. ACETAMINOPHEN [Concomitant]
     Dosage: AS NEEDED (WHEN FEELING PAIN)
  4. TYLENOL (CAPLET) [Concomitant]
     Dosage: AS NEEDED (WHEN FEELING PAIN)

REACTIONS (4)
  - SWELLING [None]
  - INJECTION SITE HAEMATOMA [None]
  - ARTHRITIS [None]
  - PAIN [None]
